FAERS Safety Report 5289215-0 (Version None)
Quarter: 2007Q1

REPORT INFORMATION
  Report Type: 
  Country: None (occurrence: None)
  Receive Date: 20070118
  Receipt Date: 20061005
  Transmission Date: 20070707
  Serious: Yes (Other)
  Sender: FDA-Public Use
  Company Number: HQWYE714406OCT06

PATIENT
  Age: 59 Year
  Sex: Male
  Weight: 113.5 kg

DRUGS (2)
  1. ADVIL PM [Suspect]
     Indication: ARTHRITIS
     Dosage: 3 CAPLETS DAILY AT BEDTIME, ORAL
     Route: 048
     Dates: start: 20061003, end: 20061004
  2. ADVIL PM [Suspect]
     Indication: INSOMNIA
     Dosage: 3 CAPLETS DAILY AT BEDTIME, ORAL
     Route: 048
     Dates: start: 20061003, end: 20061004

REACTIONS (2)
  - DRUG INEFFECTIVE [None]
  - OVERDOSE [None]
